FAERS Safety Report 14310085 (Version 2)
Quarter: 2018Q4

REPORT INFORMATION
  Report Type: Spontaneous
  Country: US (occurrence: US)
  Receive Date: 20171220
  Receipt Date: 20181214
  Transmission Date: 20190204
  Serious: Yes (Hospitalization)
  Sender: FDA-Public Use
  Company Number: US-BAUSCH-BL-2017-033855

PATIENT
  Sex: Male

DRUGS (4)
  1. APRISO [Suspect]
     Active Substance: MESALAMINE
     Indication: IRRITABLE BOWEL SYNDROME
     Route: 048
  2. APRISO [Suspect]
     Active Substance: MESALAMINE
     Indication: COLITIS
     Route: 048
  3. APRISO [Suspect]
     Active Substance: MESALAMINE
     Dosage: RESTARTED AFTER PROCEDURE
     Route: 048
  4. APRISO [Suspect]
     Active Substance: MESALAMINE
     Indication: PRODUCT USE IN UNAPPROVED INDICATION
     Dosage: FOR THE PAST YEAR FROM THE DATE OF INITIAL REPORT
     Route: 048

REACTIONS (10)
  - Skin disorder [Not Recovered/Not Resolved]
  - Condition aggravated [Not Recovered/Not Resolved]
  - Pain in extremity [Unknown]
  - Product use in unapproved indication [Unknown]
  - Epistaxis [Unknown]
  - Skin fissures [Unknown]
  - Pruritus [Unknown]
  - Atrial fibrillation [Unknown]
  - Skin haemorrhage [Unknown]
  - Fatigue [Unknown]
